FAERS Safety Report 9171444 (Version 3)
Quarter: 2013Q3

REPORT INFORMATION
  Report Type: Spontaneous
  Country: US (occurrence: None)
  Receive Date: 20130305
  Receipt Date: 20130909
  Transmission Date: 20140515
  Serious: Yes (Hospitalization, Other)
  Sender: FDA-Public Use
  Company Number: 2012032850

PATIENT
  Age: 53 Year
  Sex: Male

DRUGS (3)
  1. ZEMAIRA [Suspect]
     Dosage: ( WEEKLY, INTRAVENOUS (NOT OTHERWISE SPECIFIED))
  2. PREDNISONE (PREDNISONE) [Concomitant]
  3. ANTIBIOTIC (ANTIBIOTICS) [Concomitant]

REACTIONS (7)
  - Arthropathy [None]
  - Pain in extremity [None]
  - Joint swelling [None]
  - Arthritis [None]
  - Lung infection [None]
  - Unevaluable event [None]
  - Localised infection [None]
